FAERS Safety Report 17863621 (Version 2)
Quarter: 2020Q3

REPORT INFORMATION
  Report Type: Report from Study
  Country: None (occurrence: BR)
  Receive Date: 20200604
  Receipt Date: 20200901
  Transmission Date: 20201103
  Serious: Yes (Other)
  Sender: FDA-Public Use
  Company Number: BR-ABBVIE-20K-020-3428397-00

PATIENT
  Age: 49 Year
  Sex: Male
  Weight: 62 kg

DRUGS (2)
  1. HUMIRA [Suspect]
     Active Substance: ADALIMUMAB
     Indication: CROHN^S DISEASE
     Dosage: 1 UNSPECIFIC DOSE
     Route: 058
     Dates: start: 20140601, end: 202003
  2. GLIFAGE [Concomitant]
     Active Substance: METFORMIN HYDROCHLORIDE
     Indication: DIABETES MELLITUS
     Dosage: 500MG AFTER LUNCH AND 500MG AFTER DINNER
     Route: 048
     Dates: start: 201908

REACTIONS (5)
  - Cholecystectomy [Recovered/Resolved]
  - Abnormal faeces [Recovering/Resolving]
  - Pancreatic cyst [Recovered/Resolved]
  - Post procedural complication [Unknown]
  - Intestinal resection [Recovered/Resolved]

NARRATIVE: CASE EVENT DATE: 20190604
